FAERS Safety Report 4587331-X (Version None)
Quarter: 2005Q1

REPORT INFORMATION
  Report Type: 
  Country: None (occurrence: None)
  Receive Date: 20050215
  Receipt Date: 20050201
  Transmission Date: 20050727
  Serious: Yes (Death, Hospitalization)
  Sender: FDA-Public Use
  Company Number: CERZ-10774

PATIENT
  Age: 13 Year
  Sex: Male
  Weight: 24 kg

DRUGS (2)
  1. CEREZYME [Suspect]
     Indication: GAUCHER'S DISEASE
     Dosage: 1200 UNITS Q2WKS IV
     Route: 042
     Dates: end: 20041220
  2. UNSPECIFIED ASTHMA MEDICATION [Concomitant]

REACTIONS (3)
  - IMMUNODEFICIENCY [None]
  - PNEUMONIA [None]
  - RESPIRATORY FAILURE [None]
